FAERS Safety Report 10252366 (Version 1)
Quarter: 2014Q2

REPORT INFORMATION
  Report Type: Spontaneous
  Country: JP (occurrence: JP)
  Receive Date: 20140623
  Receipt Date: 20140623
  Transmission Date: 20141212
  Serious: Yes (Other)
  Sender: FDA-Public Use
  Company Number: JP-PFIZER INC-2014167579

PATIENT
  Age: 43 Year
  Sex: Female

DRUGS (5)
  1. METHYLPREDNISOLONE [Suspect]
     Indication: IMMUNOSUPPRESSANT DRUG THERAPY
     Dosage: 20 MG, DAILY
     Route: 048
  2. METHYLPREDNISOLONE [Suspect]
     Dosage: 8MG, DAILY
     Route: 048
  3. MYCOPHENOLATE MOFETIL [Suspect]
     Indication: IMMUNOSUPPRESSANT DRUG THERAPY
     Dosage: 1500 MG, DAILY
  4. TACROLIMUS [Suspect]
     Indication: IMMUNOSUPPRESSANT DRUG THERAPY
     Dosage: 7-10 NG/ML
  5. TACROLIMUS [Suspect]
     Dosage: 7-8M/ML

REACTIONS (2)
  - Tubulointerstitial nephritis [Recovered/Resolved]
  - BK virus infection [Recovered/Resolved]
